FAERS Safety Report 8483914-5 (Version None)
Quarter: 2012Q3

REPORT INFORMATION
  Report Type: 
  Country: None (occurrence: None)
  Receive Date: 20120703
  Receipt Date: 20120629
  Transmission Date: 20120928
  Serious: Yes (Life-Threatening, Hospitalization)
  Sender: FDA-Public Use
  Company Number: IE-TEVA-339414USA

PATIENT
  Age: 65 Year
  Sex: Male

DRUGS (27)
  1. PREDNISOLONE [Concomitant]
     Indication: PNEUMONITIS
     Dosage: 100 MILLIGRAM;
     Route: 048
     Dates: start: 20120328, end: 20120405
  2. BACTRIM [Concomitant]
     Indication: PNEUMONITIS
     Route: 048
     Dates: start: 20120328, end: 20120404
  3. ENOXAPARIN SODIUM [Concomitant]
     Indication: PULMONARY EMBOLISM
     Dates: end: 20120405
  4. CYCLIZINE [Concomitant]
     Indication: PROPHYLAXIS OF NAUSEA AND VOMITING
     Dosage: 150 MILLIGRAM;
     Dates: start: 20120401, end: 20120402
  5. ESOMEPRAZOLE [Concomitant]
     Indication: DYSPEPSIA
     Dates: start: 20111114
  6. PREGABALIN [Concomitant]
     Indication: BACK PAIN
     Dosage: 100 MILLIGRAM;
     Route: 048
     Dates: start: 20120326, end: 20120403
  7. SODIUM CHLORIDE [Concomitant]
     Route: 055
     Dates: start: 20120328, end: 20120329
  8. TREANDA [Suspect]
     Indication: NON-HODGKIN'S LYMPHOMA
     Route: 042
     Dates: start: 20120202, end: 20120423
  9. RITUXIMAB [Suspect]
     Indication: NON-HODGKIN'S LYMPHOMA
     Route: 042
     Dates: start: 20120202, end: 20120323
  10. FOLIC ACID [Concomitant]
     Indication: PROPHYLAXIS
     Route: 048
     Dates: start: 20120402
  11. LIDOCAINE [Concomitant]
     Indication: BACK PAIN
     Dates: start: 20120323
  12. IPRATROPIUM BROMIDE [Concomitant]
     Indication: PNEUMONITIS
     Route: 055
     Dates: start: 20120402, end: 20120404
  13. ACETAMINOPHEN [Concomitant]
     Indication: BACK PAIN
     Dosage: 4 GRAM;
     Route: 048
     Dates: start: 20090323
  14. VALACYCLOVIR HYDROCHLORIDE [Concomitant]
     Indication: ANTIVIRAL PROPHYLAXIS
     Dosage: 500 MILLIGRAM;
     Dates: start: 20110429
  15. METHADONE HYDROCHLORIDE [Concomitant]
     Indication: BACK PAIN
     Route: 048
     Dates: start: 20110323
  16. NULYTELY [Concomitant]
     Indication: CONSTIPATION
     Dates: start: 20120324, end: 20120402
  17. SENNA ALEXANDRINA [Concomitant]
     Indication: CONSTIPATION
     Route: 048
     Dates: start: 20120324
  18. ALPRAZOLAM [Concomitant]
     Indication: TREMOR
     Route: 048
     Dates: start: 20120401, end: 20120401
  19. ALLOPURINOL [Concomitant]
     Indication: GOUT
     Dates: start: 20091209
  20. METHADONE HYDROCHLORIDE [Concomitant]
     Route: 048
     Dates: start: 20120323
  21. CODEINE LINCTUS [Concomitant]
     Indication: COUGH
     Dosage: 30 ML;
     Dates: start: 20120326, end: 20120404
  22. ALBUTEROL SULATE [Concomitant]
     Indication: COUGH
     Route: 055
     Dates: start: 20120328, end: 20120328
  23. CALCIUM CARBONATE [Concomitant]
     Indication: HYPOCALCAEMIA
     Route: 048
     Dates: start: 20120323
  24. DOMPERIDONE [Concomitant]
     Indication: PROPHYLAXIS OF NAUSEA AND VOMITING
     Dosage: 30 MILLIEQUIVALENTS;
     Dates: start: 20120324, end: 20120401
  25. TAMSULOSIN HCL [Concomitant]
     Indication: LOWER URINARY TRACT SYMPTOMS
     Dates: start: 20110810
  26. LACTULOSE [Concomitant]
     Indication: CONSTIPATION
     Dates: start: 20120323, end: 20120417
  27. BISOPROLOL FUMARATE [Concomitant]
     Indication: TACHYCARDIA
     Dates: start: 20120301

REACTIONS (1)
  - PULMONARY EMBOLISM [None]
